FAERS Safety Report 8055989-9 (Version None)
Quarter: 2012Q1

REPORT INFORMATION
  Report Type: 
  Country: None (occurrence: None)
  Receive Date: 20120119
  Receipt Date: 20120113
  Transmission Date: 20120608
  Serious: Yes (Other)
  Sender: FDA-Public Use
  Company Number: AW-ROCHE-1030231

PATIENT
  Age: 63 Year
  Sex: Male

DRUGS (1)
  1. MABTHERA [Suspect]
     Indication: NON-HODGKIN'S LYMPHOMA
     Route: 042

REACTIONS (6)
  - HYPERHIDROSIS [None]
  - BURNING SENSATION [None]
  - SWELLING [None]
  - HEADACHE [None]
  - UNEVALUABLE EVENT [None]
  - SYNCOPE [None]
